FAERS Safety Report 14202979 (Version 1)
Quarter: 2017Q4

REPORT INFORMATION
  Report Type: Spontaneous
  Country: US (occurrence: US)
  Receive Date: 20171119
  Receipt Date: 20171119
  Transmission Date: 20180321
  Serious: No
  Sender: FDA-Public Use
  Company Number: US-ASTRAZENECA-2017SF17209

PATIENT
  Sex: Female
  Weight: 77.1 kg

DRUGS (3)
  1. BYDUREON [Suspect]
     Active Substance: EXENATIDE
     Indication: TYPE 2 DIABETES MELLITUS
     Route: 058
     Dates: start: 20170507, end: 20170910
  2. LEVEMIR [Concomitant]
     Active Substance: INSULIN DETEMIR
     Route: 058
  3. VICTOZA [Concomitant]
     Active Substance: LIRAGLUTIDE

REACTIONS (3)
  - Pollakiuria [Unknown]
  - Injection site bruising [Unknown]
  - Diarrhoea [Unknown]
